FAERS Safety Report 5337323-8 (Version None)
Quarter: 2007Q2

REPORT INFORMATION
  Report Type: 
  Country: None (occurrence: None)
  Receive Date: 20070529
  Receipt Date: 20070517
  Transmission Date: 20071010
  Serious: Yes (Other)
  Sender: FDA-Public Use
  Company Number: US-PFIZER INC-2007040868

PATIENT
  Sex: Female
  Weight: 54.4 kg

DRUGS (10)
  1. CHANTIX [Suspect]
     Indication: EX-SMOKER
  2. LOVASTATIN [Concomitant]
  3. ESTRADIOL [Concomitant]
  4. AMBIEN [Concomitant]
  5. PROZAC [Concomitant]
  6. OMEPRAZOLE [Concomitant]
  7. PROPRANOLOL [Concomitant]
  8. BENAZEPRIL HYDROCHLORIDE [Concomitant]
  9. METHIMAZOLE [Concomitant]
  10. VITAMINS [Concomitant]

REACTIONS (1)
  - PHARYNGEAL OEDEMA [None]
